FAERS Safety Report 21698072 (Version 1)
Quarter: 2022Q4

REPORT INFORMATION
  Report Type: Spontaneous
  Country: US (occurrence: US)
  Receive Date: 20221208
  Receipt Date: 20221208
  Transmission Date: 20230113
  Serious: No
  Sender: FDA-Public Use
  Company Number: US-EyePoint Pharmaceuticals, Inc.-US-EYP-22-00042

PATIENT
  Age: 30 Year
  Sex: Male

DRUGS (2)
  1. YUTIQ [Suspect]
     Active Substance: FLUOCINOLONE ACETONIDE
     Indication: Uveitis
     Dosage: IN THE LEFT EYE/OS, IN THE POSTERIOR CHAMBER
     Route: 031
     Dates: start: 20220307, end: 20220307
  2. PREDNISOLONE ACETATE [Concomitant]
     Active Substance: PREDNISOLONE ACETATE
     Indication: Uveitis
     Dosage: BOTH EYES/OU
     Dates: start: 20220103, end: 20220307

REACTIONS (4)
  - Syringe issue [Recovered/Resolved]
  - Product quality issue [Recovered/Resolved]
  - Product use complaint [Recovered/Resolved]
  - No adverse event [Unknown]

NARRATIVE: CASE EVENT DATE: 20220307
